FAERS Safety Report 24609821 (Version 3)
Quarter: 2025Q3

REPORT INFORMATION
  Report Type: Report from Study
  Country: BR (occurrence: BR)
  Receive Date: 20241112
  Receipt Date: 20250708
  Transmission Date: 20251020
  Serious: Yes (Death, Other)
  Sender: TAKEDA
  Company Number: BR-TAKEDA-2024TUS113121

PATIENT
  Sex: Female

DRUGS (7)
  1. BRIGATINIB [Suspect]
     Active Substance: BRIGATINIB
     Indication: Non-small cell lung cancer
     Dosage: 180 MILLIGRAM, QD
     Dates: start: 20240114
  2. BRIGATINIB [Suspect]
     Active Substance: BRIGATINIB
     Dosage: 180 MILLIGRAM, QD
     Dates: start: 202401, end: 202408
  3. Isocord [Concomitant]
  4. ASPIRIN\DIHYDROXYALUMINUM AMINOACETATE ANHYDROUS\MAGNESIUM CARBONATE [Concomitant]
     Active Substance: ASPIRIN\DIHYDROXYALUMINUM AMINOACETATE ANHYDROUS\MAGNESIUM CARBONATE
  5. EUTHYROX [Concomitant]
     Active Substance: LEVOTHYROXINE SODIUM
  6. XARELTO [Concomitant]
     Active Substance: RIVAROXABAN
  7. Picbam [Concomitant]

REACTIONS (9)
  - Death [Fatal]
  - Metastasis [Unknown]
  - Lung neoplasm malignant [Unknown]
  - Brain neoplasm [Not Recovered/Not Resolved]
  - Drug ineffective [Unknown]
  - Hiatus hernia [Unknown]
  - Bone lesion [Unknown]
  - Muscular weakness [Unknown]
  - Asthenia [Unknown]
